FAERS Safety Report 9319586 (Version 1)
Quarter: 2013Q2

REPORT INFORMATION
  Report Type: Spontaneous
  Country: US (occurrence: US)
  Receive Date: 20130530
  Receipt Date: 20130530
  Transmission Date: 20140414
  Serious: No
  Sender: FDA-Public Use
  Company Number: US-GLAXOSMITHKLINE-A1009772A

PATIENT
  Sex: Female

DRUGS (3)
  1. FLOLAN [Suspect]
     Indication: PRODUCT USED FOR UNKNOWN INDICATION
     Dosage: 54NGKM CONTINUOUS
     Route: 042
     Dates: start: 19990930
  2. TEGADERM [Suspect]
  3. CHLORAPREP [Concomitant]

REACTIONS (1)
  - Infusion site irritation [Unknown]
